FAERS Safety Report 24637132 (Version 1)
Quarter: 2024Q4

REPORT INFORMATION
  Report Type: Spontaneous
  Country: GB (occurrence: GB)
  Receive Date: 20241119
  Receipt Date: 20241119
  Transmission Date: 20250114
  Serious: Yes (Disabling)
  Sender: CHATTEM
  Company Number: None

PATIENT
  Age: 34 Year
  Sex: Female

DRUGS (7)
  1. TRIAMCINOLONE [Suspect]
     Active Substance: TRIAMCINOLONE
     Indication: Pain
     Dosage: 40MG
     Dates: start: 20241009, end: 20241009
  2. COCODAMOL [Concomitant]
     Active Substance: ACETAMINOPHEN\CODEINE PHOSPHATE
     Indication: Pain
  3. LANSOPRAZOLE [Concomitant]
     Active Substance: LANSOPRAZOLE
     Indication: Product used for unknown indication
  4. FEXOFENADINE [Concomitant]
     Active Substance: FEXOFENADINE HYDROCHLORIDE
     Indication: Product used for unknown indication
  5. NAPROXEN [Concomitant]
     Active Substance: NAPROXEN
     Indication: Product used for unknown indication
  6. MORPHINE [Concomitant]
     Active Substance: MORPHINE
     Indication: Product used for unknown indication
  7. DULOXETINE [Concomitant]
     Active Substance: DULOXETINE
     Indication: Product used for unknown indication

REACTIONS (1)
  - Oedema peripheral [Recovered/Resolved]

NARRATIVE: CASE EVENT DATE: 20241009
